FAERS Safety Report 10434338 (Version 1)
Quarter: 2014Q3

REPORT INFORMATION
  Report Type: Spontaneous
  Country: IT (occurrence: IT)
  Receive Date: 20140905
  Receipt Date: 20140905
  Transmission Date: 20150326
  Serious: Yes (Hospitalization)
  Sender: FDA-Public Use
  Company Number: PHHY2014IT108130

PATIENT
  Age: 59 Year
  Sex: Female

DRUGS (2)
  1. TEGRETOL [Suspect]
     Active Substance: CARBAMAZEPINE
     Dosage: 1800 MG, DAILY
     Route: 048
     Dates: start: 20140527, end: 20140716
  2. GARDENALE [Concomitant]
     Active Substance: PHENOBARBITAL
     Dosage: 150 MG (100 AND 50 MG), UNK
     Route: 048
     Dates: start: 20140527, end: 20140716

REACTIONS (4)
  - Bradykinesia [Unknown]
  - Asthenia [Unknown]
  - Pupils unequal [Unknown]
  - Bradyphrenia [Unknown]

NARRATIVE: CASE EVENT DATE: 20140714
